FAERS Safety Report 9220300 (Version 1)
Quarter: 2013Q2

REPORT INFORMATION
  Report Type: Report from Study
  Country: DE (occurrence: DE)
  Receive Date: 20130409
  Receipt Date: 20130409
  Transmission Date: 20140414
  Serious: Yes (Hospitalization)
  Sender: FDA-Public Use
  Company Number: DE-TEVA-395104ISR

PATIENT
  Age: 43 Year
  Sex: Female
  Weight: 77 kg

DRUGS (8)
  1. PACLITAXEL [Suspect]
     Indication: OVARIAN CANCER
     Dosage: 175 MG/M2 DAILY; DATE OF LAST DOSE PRIOR TO SAE- 09-JAN-2013 (1 IN 3 WK)
     Route: 042
     Dates: start: 20120926
  2. CARBOPLATIN [Suspect]
     Indication: OVARIAN CANCER
     Dosage: DATE OF LAST DOSE PRIOR TO SAE: 09-JAN-2013; AUC-5 (1 IN 3 WK)
     Route: 042
     Dates: start: 20120926
  3. BEVACIZUMAB [Suspect]
     Indication: OVARIAN CANCER
     Dosage: 15 MG/KG DAILY; DATE OF LAST DOSE PRIOR TO SAE- 19-DEC-2012 (1 IN 3 WK)
     Route: 042
     Dates: start: 20121015, end: 20121126
  4. BEVACIZUMAB [Suspect]
     Dosage: 15 MG/KG DAILY; DATE OF LAST DOSE PRIOR TO SAE- 19-DEC-2012 (1 IN 3 WK)
     Route: 042
     Dates: start: 20121219, end: 20130109
  5. DIOVAN [Concomitant]
     Indication: HYPERTENSION
     Dosage: 160 MG/12.5 MG
     Route: 048
     Dates: start: 20130115
  6. AMLODIPIN [Concomitant]
     Indication: HYPERTENSION
     Dosage: 20 MILLIGRAM DAILY; (10 MG, 2X1/2)
     Dates: start: 20130115
  7. NEBIVOLOL [Concomitant]
     Indication: HYPERTENSION
     Dosage: 5 MILLIGRAM DAILY;
     Route: 048
     Dates: start: 20130115
  8. MOXONIDIN [Concomitant]
     Indication: HYPERTENSION
     Dosage: (0.2 UNIT NOT
     Route: 048
     Dates: start: 20130115

REACTIONS (5)
  - Bronchitis [Recovered/Resolved]
  - Febrile neutropenia [Recovered/Resolved]
  - Constipation [Not Recovered/Not Resolved]
  - Anaemia [Recovered/Resolved]
  - Abdominal pain [Recovered/Resolved]
